FAERS Safety Report 5445863-6 (Version None)
Quarter: 2007Q3

REPORT INFORMATION
  Report Type: 
  Country: None (occurrence: None)
  Receive Date: 20070907
  Receipt Date: 20070903
  Transmission Date: 20080115
  Serious: Yes (Hospitalization)
  Sender: FDA-Public Use
  Company Number: PHRM2007FR02126

PATIENT
  Age: 57 Year
  Sex: Female

DRUGS (1)
  1. GYNERGENE CAFEINE [Suspect]
     Dosage: 6/600MG TO 8/800MG/DAY
     Route: 048
     Dates: end: 20050101

REACTIONS (4)
  - DRUG WITHDRAWAL SYNDROME [None]
  - DYSGEUSIA [None]
  - INCORRECT DRUG ADMINISTRATION DURATION [None]
  - PARAESTHESIA [None]
